FAERS Safety Report 10229363 (Version 2)
Quarter: 2014Q2

REPORT INFORMATION
  Report Type: Spontaneous
  Country: FI (occurrence: FI)
  Receive Date: 20140611
  Receipt Date: 20140626
  Transmission Date: 20141212
  Serious: Yes (Hospitalization)
  Sender: FDA-Public Use
  Company Number: FI-ROCHE-1414786

PATIENT
  Age: 55 Year
  Sex: Female

DRUGS (5)
  1. XELODA [Suspect]
     Indication: GASTRIC CANCER
     Dosage: 3 CYCLES AS NEOADJUVANT
     Route: 048
     Dates: start: 201311
  2. XELODA [Suspect]
     Dosage: LAST CYCLE STARTED ON 02-JUN-2014
     Route: 048
  3. EPIRUBICIN [Concomitant]
     Indication: GASTRIC CANCER
     Dosage: 3 CYCLES AS NEOADJUVANT
     Route: 065
     Dates: start: 201311
  4. OXALIPLATIN [Concomitant]
     Indication: GASTRIC CANCER
     Dosage: 3 CYCLES AS NEOADJUVANT
     Route: 065
     Dates: start: 201311
  5. CANNABIS [Concomitant]
     Route: 065
     Dates: start: 20140602

REACTIONS (11)
  - Suicide attempt [Recovered/Resolved]
  - Overdose [Unknown]
  - Loss of consciousness [Recovered/Resolved]
  - Pyrexia [Recovering/Resolving]
  - Mucosal inflammation [Recovering/Resolving]
  - Bone marrow failure [Recovering/Resolving]
  - Neutrophil count decreased [Recovering/Resolving]
  - Platelet count decreased [Recovering/Resolving]
  - White blood cell count decreased [Recovering/Resolving]
  - Haemoglobin decreased [Recovering/Resolving]
  - Drug abuse [Unknown]
